FAERS Safety Report 12492659 (Version 1)
Quarter: 2016Q2

REPORT INFORMATION
  Report Type: Spontaneous
  Country: US (occurrence: None)
  Receive Date: 20160622
  Receipt Date: 20160622
  Transmission Date: 20160815
  Serious: Yes (Hospitalization)
  Sender: FDA-Public Use
  Company Number: None

PATIENT
  Age: 28 Year
  Sex: Male

DRUGS (1)
  1. ENBREL [Suspect]
     Active Substance: ETANERCEPT
     Indication: ANKYLOSING SPONDYLITIS
     Dosage: 50MG/ML EVERY WEEK SUBCUTANEOUSLY
     Route: 058
     Dates: start: 20150401, end: 20160521

REACTIONS (1)
  - Infection [None]

NARRATIVE: CASE EVENT DATE: 20160613
